FAERS Safety Report 15280553 (Version 1)
Quarter: 2018Q3

REPORT INFORMATION
  Report Type: Spontaneous
  Country: US (occurrence: US)
  Receive Date: 20180730
  Receipt Date: 20180730
  Transmission Date: 20181010
  Serious: Yes (Other)
  Sender: FDA-Public Use
  Company Number: None

PATIENT
  Age: 67 Year
  Sex: Female
  Weight: 63.5 kg

DRUGS (8)
  1. VALSARTAN/HG [Concomitant]
  2. REPATHA [Concomitant]
     Active Substance: EVOLOCUMAB
  3. CENTRUM [Concomitant]
     Active Substance: VITAMINS
  4. VALSARTAN AND HYDROCHLOROTHIAZIDE TABLETS 160/25MG [Suspect]
     Active Substance: HYDROCHLOROTHIAZIDE\VALSARTAN
     Indication: HYPERTENSION
     Route: 048
     Dates: start: 201804, end: 201807
  5. VITAMIN D [Concomitant]
     Active Substance: CHOLECALCIFEROL
  6. AMLODIPINE [Concomitant]
     Active Substance: AMLODIPINE BESYLATE
  7. CALTRATE WITH VITAMIN D [Concomitant]
     Active Substance: CALCIUM CARBONATE\CHOLECALCIFEROL
  8. BAYER [Concomitant]
     Active Substance: ASPIRIN

REACTIONS (4)
  - Diarrhoea [None]
  - Loss of personal independence in daily activities [None]
  - Abdominal pain upper [None]
  - Discomfort [None]
